FAERS Safety Report 14730982 (Version 1)
Quarter: 2018Q2

REPORT INFORMATION
  Report Type: Spontaneous
  Country: US (occurrence: US)
  Receive Date: 20180406
  Receipt Date: 20180406
  Transmission Date: 20180711
  Serious: No
  Sender: FDA-Public Use
  Company Number: US-IPSEN BIOPHARMACEUTICALS, INC.-2018-04441

PATIENT
  Age: 32 Year
  Sex: Female

DRUGS (4)
  1. RETIN-A [Concomitant]
     Active Substance: TRETINOIN
     Indication: ACNE
  2. DYSPORT [Suspect]
     Active Substance: ABOBOTULINUMTOXINA
     Indication: SKIN WRINKLING
     Dosage: NOT REPORTED
     Route: 065
     Dates: start: 20180125, end: 20180125
  3. LASIX [Concomitant]
     Active Substance: FUROSEMIDE
     Dates: start: 201801
  4. ONEXTON [Concomitant]
     Active Substance: BENZOYL PEROXIDE\CLINDAMYCIN PHOSPHATE
     Indication: ACNE

REACTIONS (4)
  - Vision blurred [Not Recovered/Not Resolved]
  - Injection site pain [Not Recovered/Not Resolved]
  - Foreign body sensation in eyes [Not Recovered/Not Resolved]
  - Corneal disorder [Not Recovered/Not Resolved]

NARRATIVE: CASE EVENT DATE: 20180127
